FAERS Safety Report 8353481-5 (Version None)
Quarter: 2012Q2

REPORT INFORMATION
  Report Type: 
  Country: None (occurrence: None)
  Receive Date: 20120511
  Receipt Date: 20110408
  Transmission Date: 20120825
  Serious: No
  Sender: FDA-Public Use
  Company Number: US-GLAXOSMITHKLINE-A0923035A

PATIENT
  Age: 57 Year
  Sex: Female

DRUGS (5)
  1. TYKERB [Suspect]
     Indication: BREAST CANCER
     Dosage: 1250MG PER DAY
     Route: 048
     Dates: start: 20110328, end: 20110101
  2. AMBIEN [Concomitant]
  3. XELODA [Suspect]
     Indication: BREAST CANCER
     Route: 065
     Dates: start: 20110328, end: 20110401
  4. NEXIUM [Concomitant]
  5. LOMOTIL [Concomitant]

REACTIONS (5)
  - PRODUCT QUALITY ISSUE [None]
  - DIARRHOEA [None]
  - VOMITING [None]
  - WEIGHT DECREASED [None]
  - MEDICATION RESIDUE [None]
